FAERS Safety Report 19683541 (Version 1)
Quarter: 2021Q3

REPORT INFORMATION
  Report Type: Spontaneous
  Country: AR (occurrence: AR)
  Receive Date: 20210810
  Receipt Date: 20210810
  Transmission Date: 20211014
  Serious: Yes (Hospitalization)
  Sender: FDA-Public Use
  Company Number: AR-BIOMARINAP-AR-2021-137720

PATIENT
  Age: 12 Year
  Sex: Male

DRUGS (1)
  1. VIMIZIM [Suspect]
     Active Substance: ELOSULFASE ALFA
     Indication: PRODUCT USED FOR UNKNOWN INDICATION
     Dosage: 50 MILLIGRAM, QW
     Route: 042

REACTIONS (3)
  - Blister [Recovered/Resolved]
  - Chillblains [Recovered/Resolved]
  - Dermatosis [Recovered/Resolved]

NARRATIVE: CASE EVENT DATE: 20210712
